FAERS Safety Report 12410518 (Version 1)
Quarter: 2016Q2

REPORT INFORMATION
  Report Type: Spontaneous
  Country: AR (occurrence: AR)
  Receive Date: 20160527
  Receipt Date: 20160527
  Transmission Date: 20160815
  Serious: Yes (Death, Hospitalization)
  Sender: FDA-Public Use
  Company Number: AR-BAXTER-2016BAX026917

PATIENT
  Age: 71 Year
  Sex: Male
  Weight: 80 kg

DRUGS (2)
  1. DIANEAL PD-2 WITH DEXTROSE [Suspect]
     Active Substance: CALCIUM CHLORIDE\DEXTROSE\MAGNESIUM CHLORIDE\SODIUM CHLORIDE\SODIUM LACTATE
     Indication: PERITONEAL DIALYSIS
  2. DIANEAL PD-2 WITH DEXTROSE [Suspect]
     Active Substance: CALCIUM CHLORIDE\DEXTROSE\MAGNESIUM CHLORIDE\SODIUM CHLORIDE\SODIUM LACTATE
     Indication: CHRONIC KIDNEY DISEASE
     Route: 033
     Dates: start: 20160118, end: 20160415

REACTIONS (2)
  - Sepsis [Fatal]
  - Pancreatic carcinoma [Not Recovered/Not Resolved]
